FAERS Safety Report 8160889-X (Version None)
Quarter: 2012Q1

REPORT INFORMATION
  Report Type: 
  Country: None (occurrence: None)
  Receive Date: 20120223
  Receipt Date: 20120214
  Transmission Date: 20120608
  Serious: Yes (Hospitalization)
  Sender: FDA-Public Use
  Company Number: ES-ASTRAZENECA-2011SE75422

PATIENT
  Age: 69 Year
  Sex: Male

DRUGS (6)
  1. CITALOPRAM HYDROBROMIDE [Concomitant]
     Route: 048
     Dates: start: 20110101, end: 20111012
  2. ATORVASTATINA [Concomitant]
     Indication: HYPERLIPIDAEMIA
     Route: 048
  3. ZESTORETIC [Suspect]
     Indication: HYPERTENSION
     Dosage: 20 MG/12,5 MG DAILY
     Route: 048
     Dates: end: 20111012
  4. DEPAKENE [Suspect]
     Route: 048
     Dates: start: 20110101, end: 20111012
  5. BISOPROLOL FUMARATE [Concomitant]
     Indication: HYPERTENSIVE CARDIOMYOPATHY
     Route: 048
  6. ZOMARIST [Concomitant]
     Indication: DIABETES MELLITUS
     Dosage: 50/1000 MG DAILY
     Route: 048
     Dates: end: 20111012

REACTIONS (3)
  - HYPONATRAEMIA [None]
  - HYPERTRANSAMINASAEMIA [None]
  - PANCYTOPENIA [None]
